FAERS Safety Report 9717055 (Version 1)
Quarter: 2013Q4

REPORT INFORMATION
  Report Type: Spontaneous
  Country: US (occurrence: US)
  Receive Date: 20131127
  Receipt Date: 20131127
  Transmission Date: 20140711
  Serious: No
  Sender: FDA-Public Use
  Company Number: US-GILEAD-2009-0020799

PATIENT
  Sex: Female
  Weight: 59.87 kg

DRUGS (10)
  1. LETAIRIS [Suspect]
     Indication: PULMONARY ARTERIAL HYPERTENSION
     Route: 048
     Dates: start: 20080226
  2. METOPROLOL [Concomitant]
  3. LIPITOR [Concomitant]
  4. PREDNISONE [Concomitant]
  5. FENTANYL PATCH [Concomitant]
  6. METFORMIN ER [Concomitant]
  7. ACTOS [Concomitant]
  8. GLIMEPIRIDE [Concomitant]
  9. ENABLEX [Concomitant]
  10. MOTRIN [Concomitant]

REACTIONS (2)
  - Chest pain [Unknown]
  - Chest discomfort [Unknown]
